FAERS Safety Report 10082316 (Version 1)
Quarter: 2014Q2

REPORT INFORMATION
  Report Type: Spontaneous
  Country: CN (occurrence: CN)
  Receive Date: 20140416
  Receipt Date: 20140416
  Transmission Date: 20141212
  Serious: Yes (Other)
  Sender: FDA-Public Use
  Company Number: CN-PFIZER INC-2014103082

PATIENT
  Age: 50 Year
  Sex: Female
  Weight: 50 kg

DRUGS (1)
  1. CARDURA XL [Suspect]
     Indication: URETHRAL SYNDROME
     Dosage: 1 DF, 1X/DAY
     Route: 048
     Dates: start: 20130430, end: 20130504

REACTIONS (3)
  - Tongue paralysis [Recovering/Resolving]
  - Dry mouth [Recovering/Resolving]
  - Pharyngitis [Recovering/Resolving]
